FAERS Safety Report 8542367-9 (Version None)
Quarter: 2012Q3

REPORT INFORMATION
  Report Type: 
  Country: None (occurrence: None)
  Receive Date: 20120726
  Receipt Date: 20111007
  Transmission Date: 20120928
  Serious: Yes (Other)
  Sender: FDA-Public Use
  Company Number: US-ASTRAZENECA-2011SE52857

PATIENT
  Age: 21 Year
  Sex: Male
  Weight: 69.4 kg

DRUGS (7)
  1. SEROQUEL [Suspect]
     Indication: PSYCHOTIC DISORDER
     Route: 048
     Dates: start: 20090101
  2. RISPERDAL [Suspect]
     Route: 065
  3. ZYPREXA [Suspect]
     Route: 065
  4. ABILIFY [Concomitant]
     Indication: DEPRESSION
     Route: 048
  5. SEROQUEL [Suspect]
     Indication: ANTISOCIAL BEHAVIOUR
     Route: 048
     Dates: start: 20090101
  6. SEROQUEL [Suspect]
     Route: 048
     Dates: start: 20091001
  7. SEROQUEL [Suspect]
     Route: 048
     Dates: start: 20091001

REACTIONS (8)
  - RASH [None]
  - DEPRESSION [None]
  - HOSTILITY [None]
  - AGGRESSION [None]
  - WEIGHT DECREASED [None]
  - DRUG DOSE OMISSION [None]
  - WRONG DRUG ADMINISTERED [None]
  - OFF LABEL USE [None]
